FAERS Safety Report 23084722 (Version 2)
Quarter: 2023Q4

REPORT INFORMATION
  Report Type: Spontaneous
  Country: US (occurrence: US)
  Receive Date: 20231019
  Receipt Date: 20231227
  Transmission Date: 20240109
  Serious: Yes (Other)
  Sender: FDA-Public Use
  Company Number: US-ELI_LILLY_AND_COMPANY-US202310007430

PATIENT
  Sex: Female

DRUGS (3)
  1. EMGALITY [Suspect]
     Active Substance: GALCANEZUMAB-GNLM
     Indication: Hemiplegic migraine
     Dosage: 120 MG, UNKNOWN
     Route: 065
     Dates: start: 202202
  2. EMGALITY [Suspect]
     Active Substance: GALCANEZUMAB-GNLM
     Dosage: 120 MG, UNKNOWN
     Route: 065
  3. GABAPENTIN [Concomitant]
     Active Substance: GABAPENTIN
     Indication: Transient ischaemic attack
     Dosage: UNK

REACTIONS (4)
  - Transient ischaemic attack [Recovering/Resolving]
  - Visual impairment [Not Recovered/Not Resolved]
  - Dysphagia [Unknown]
  - Injection site pruritus [Recovered/Resolved]
